FAERS Safety Report 4280670-1 (Version None)
Quarter: 2004Q1

REPORT INFORMATION
  Report Type: 
  Country: None (occurrence: None)
  Receive Date: 20040127
  Receipt Date: 20030703
  Transmission Date: 20041129
  Serious: Yes (Hospitalization)
  Sender: FDA-Public Use
  Company Number: 2003IM000716

PATIENT
  Age: 65 Year
  Sex: Male

DRUGS (1)
  1. ACTIMMUNE [Suspect]
     Indication: ALVEOLITIS FIBROSING
     Dosage: 20 UG;TIW;SUBCUTANEOUS
     Route: 058
     Dates: start: 20020919, end: 20030618

REACTIONS (3)
  - ALVEOLITIS FIBROSING [None]
  - DISEASE PROGRESSION [None]
  - LUNG TRANSPLANT [None]
